FAERS Safety Report 7195004-2 (Version None)
Quarter: 2010Q4

REPORT INFORMATION
  Report Type: 
  Country: None (occurrence: None)
  Receive Date: 20101223
  Receipt Date: 20100922
  Transmission Date: 20110411
  Serious: Yes (Other)
  Sender: FDA-Public Use
  Company Number: US-AMGEN-KDL440018

PATIENT

DRUGS (6)
  1. ENBREL [Suspect]
     Indication: RHEUMATOID ARTHRITIS
     Dosage: UNK UNK, UNK
  2. AMLODIPINE [Concomitant]
     Dosage: UNK UNK, UNK
  3. OLMESARTAN MEDOXOMIL [Concomitant]
     Dosage: UNK UNK, UNK
  4. CARVEDILOL [Concomitant]
     Dosage: UNK UNK, UNK
  5. ACETAMINOPHEN AND HYDROCODONE BITARTRATE [Concomitant]
     Dosage: UNK UNK, UNK
  6. OMEPRAZOLE [Concomitant]
     Dosage: UNK UNK, UNK

REACTIONS (3)
  - LUPUS-LIKE SYNDROME [None]
  - PAIN [None]
  - RASH [None]
